FAERS Safety Report 8599428 (Version 3)
Quarter: 2015Q3

REPORT INFORMATION
  Report Type: Report from Study
  Country: CA (occurrence: CA)
  Receive Date: 20120605
  Receipt Date: 20150731
  Transmission Date: 20151125
  Serious: Yes (Death, Life-Threatening, Hospitalization)
  Sender: FDA-Public Use
  Company Number: PHHO2012CA008397

PATIENT
  Age: 92 Year
  Sex: Female
  Weight: 55 kg

DRUGS (1)
  1. CGS 20267 [Suspect]
     Active Substance: LETROZOLE
     Indication: BREAST CANCER
     Dosage: 2.5 MG, QD
     Route: 048
     Dates: start: 20060621

REACTIONS (1)
  - Cardiac ventricular disorder [Fatal]

NARRATIVE: CASE EVENT DATE: 20090325
